FAERS Safety Report 23337497 (Version 8)
Quarter: 2024Q3

REPORT INFORMATION
  Report Type: Spontaneous
  Country: JP (occurrence: JP)
  Receive Date: 20231226
  Receipt Date: 20240916
  Transmission Date: 20241017
  Serious: Yes (Disabling, Other)
  Sender: ASTELLAS
  Company Number: JP-ASTELLAS-2023JP014170

PATIENT
  Age: 75 Year
  Sex: Female
  Weight: 49 kg

DRUGS (14)
  1. XOSPATA [Suspect]
     Active Substance: GILTERITINIB
     Indication: Acute myeloid leukaemia refractory
     Route: 048
     Dates: start: 20231206, end: 20231220
  2. XOSPATA [Suspect]
     Active Substance: GILTERITINIB
     Route: 048
     Dates: start: 20240119
  3. ESOMEPRAZOLE [Concomitant]
     Active Substance: ESOMEPRAZOLE
     Indication: Prophylaxis
     Route: 048
     Dates: start: 20231031, end: 20231220
  4. MAGNESIUM OXIDE [Concomitant]
     Active Substance: MAGNESIUM OXIDE
     Indication: Constipation
     Route: 048
     Dates: start: 20231101, end: 20231220
  5. Dayvigo tablet [Concomitant]
     Indication: Insomnia
     Route: 048
     Dates: start: 20231101, end: 20231220
  6. AMLODIPINE [Concomitant]
     Active Substance: AMLODIPINE BESYLATE
     Indication: Blood pressure increased
     Route: 048
     Dates: start: 20231102, end: 20231220
  7. Trazenta tablet [Concomitant]
     Indication: Diabetes mellitus
     Route: 048
     Dates: start: 20231107, end: 20231220
  8. Daiphen tablet [Concomitant]
     Indication: Prophylaxis
     Route: 048
     Dates: start: 20231108, end: 20231220
  9. JARDIANCE [Concomitant]
     Active Substance: EMPAGLIFLOZIN
     Indication: Diabetes mellitus
     Route: 048
     Dates: start: 20231108, end: 20231220
  10. FLUCONAZOLE [Concomitant]
     Active Substance: FLUCONAZOLE
     Indication: Infection prophylaxis
     Route: 048
     Dates: start: 20231108, end: 20231220
  11. MIRTAZAPINE [Concomitant]
     Active Substance: MIRTAZAPINE
     Indication: Insomnia
     Route: 048
     Dates: start: 20231124, end: 20231220
  12. POTASSIUM CHLORIDE [Concomitant]
     Active Substance: POTASSIUM CHLORIDE
     Indication: Hypokalaemia
     Route: 048
     Dates: start: 20231130, end: 20231220
  13. Sodium chloride powder [Concomitant]
     Indication: Hyponatraemia
     Route: 048
     Dates: start: 20231201, end: 20231220
  14. Finibax injection [Concomitant]
     Indication: Infection
     Route: 042
     Dates: start: 20231218, end: 20231230

REACTIONS (2)
  - Cerebral infarction [Recovered/Resolved with Sequelae]
  - Infection [Recovered/Resolved]

NARRATIVE: CASE EVENT DATE: 20231218
